FAERS Safety Report 10154812 (Version 1)
Quarter: 2014Q2

REPORT INFORMATION
  Report Type: Spontaneous
  Country: RU (occurrence: RU)
  Receive Date: 20140506
  Receipt Date: 20140506
  Transmission Date: 20141212
  Serious: Yes (Other)
  Sender: FDA-Public Use
  Company Number: RU-ASTRAZENECA-2014SE29498

PATIENT
  Age: 55 Year
  Sex: Male

DRUGS (1)
  1. BETALOC ZOK [Suspect]
     Route: 048

REACTIONS (3)
  - Blood pressure abnormal [Unknown]
  - Blood pressure decreased [Recovered/Resolved]
  - Dizziness [Recovered/Resolved]
